FAERS Safety Report 22065074 (Version 1)
Quarter: 2023Q1

REPORT INFORMATION
  Report Type: Spontaneous
  Country: FR (occurrence: FR)
  Receive Date: 20230306
  Receipt Date: 20230306
  Transmission Date: 20230417
  Serious: Yes (Other)
  Sender: FDA-Public Use
  Company Number: FR-MYLANLABS-2023M1023691

PATIENT
  Age: 9 Year
  Sex: Male

DRUGS (9)
  1. RISPERIDONE [Suspect]
     Active Substance: RISPERIDONE
     Indication: Hallucination, visual
     Dosage: 2 MILLIGRAM, QD
     Route: 065
  2. RISPERIDONE [Suspect]
     Active Substance: RISPERIDONE
     Indication: Hallucination, auditory
  3. ARIPIPRAZOLE [Suspect]
     Active Substance: ARIPIPRAZOLE
     Indication: Schizophrenia
     Dosage: 15 MILLIGRAM, QD
     Route: 065
  4. CLOZAPINE [Interacting]
     Active Substance: CLOZAPINE
     Indication: Schizophrenia
     Dosage: 300 MILLIGRAM, QD
     Route: 065
  5. CLOZAPINE [Interacting]
     Active Substance: CLOZAPINE
     Dosage: UNK (THEN WAS REINTRODUCED)
     Route: 065
  6. FLUVOXAMINE [Interacting]
     Active Substance: FLUVOXAMINE
     Indication: Schizophrenia
     Dosage: 50 MILLIGRAM, QD
     Route: 065
  7. FLUVOXAMINE [Interacting]
     Active Substance: FLUVOXAMINE
     Dosage: 25 MILLIGRAM, QD (REINTRODUCED)
     Route: 065
  8. LEVOMEPROMAZINE [Interacting]
     Active Substance: LEVOMEPROMAZINE
     Indication: Schizophrenia
     Dosage: 15 MILLIGRAM, QD
     Route: 065
  9. HALOPERIDOL [Suspect]
     Active Substance: HALOPERIDOL
     Indication: Schizophrenia
     Dosage: 1.5 MILLIGRAM, QD
     Route: 065

REACTIONS (6)
  - Drug ineffective [Unknown]
  - Sedation [Recovered/Resolved]
  - Hallucination [Recovered/Resolved]
  - Electrocardiogram QT prolonged [Unknown]
  - Drug interaction [Unknown]
  - Off label use [Unknown]
